FAERS Safety Report 5777515-7 (Version None)
Quarter: 2008Q2

REPORT INFORMATION
  Report Type: 
  Country: None (occurrence: None)
  Receive Date: 20080618
  Receipt Date: 20080605
  Transmission Date: 20081010
  Serious: Yes (Other)
  Sender: FDA-Public Use
  Company Number: US-ELI_LILLY_AND_COMPANY-US200805004889

PATIENT
  Age: 47 Year
  Sex: Female

DRUGS (7)
  1. CYMBALTA [Suspect]
     Indication: DEPRESSION
     Dosage: 60 MG, DAILY (1/D)
     Dates: start: 20060101, end: 20080101
  2. ATIVAN [Concomitant]
  3. PROTONIX [Concomitant]
  4. PREMARIN [Concomitant]
  5. FUROSEMIDE [Concomitant]
  6. VICODIN [Concomitant]
  7. DURAGESIC-100 [Concomitant]
     Indication: PAIN
     Dosage: 50 MG, UNK

REACTIONS (3)
  - DRUG INEFFECTIVE [None]
  - FALL [None]
  - FOOT FRACTURE [None]
